FAERS Safety Report 12939506 (Version 4)
Quarter: 2017Q4

REPORT INFORMATION
  Report Type: Report from Study
  Country: CA (occurrence: CA)
  Receive Date: 20161115
  Receipt Date: 20171107
  Transmission Date: 20180320
  Serious: Yes (Other)
  Sender: FDA-Public Use
  Company Number: CA-ROCHE-1853394

PATIENT
  Age: 33 Year
  Sex: Female
  Weight: 141.65 kg

DRUGS (9)
  1. PREDNISONE. [Suspect]
     Active Substance: PREDNISONE
     Indication: PRODUCT USED FOR UNKNOWN INDICATION
     Route: 065
  2. RITUXAN [Suspect]
     Active Substance: RITUXIMAB
     Indication: GRANULOMATOSIS WITH POLYANGIITIS
     Dosage: 375 MG/M2 X 4
     Route: 042
     Dates: start: 201608
  3. RITUXAN [Suspect]
     Active Substance: RITUXIMAB
     Dosage: LAST RIRUXIMAB
     Route: 042
     Dates: start: 20170614
  4. FUROSEMIDE. [Concomitant]
     Active Substance: FUROSEMIDE
     Route: 065
  5. APO-CEPHALEX [Concomitant]
     Active Substance: CEPHALEXIN
     Route: 065
  6. AZATHIOPRINE. [Suspect]
     Active Substance: AZATHIOPRINE
     Indication: PRODUCT USED FOR UNKNOWN INDICATION
     Route: 065
     Dates: start: 201608
  7. AZATHIOPRINE. [Suspect]
     Active Substance: AZATHIOPRINE
     Dosage: ABOUT 3-6 MONTHS
     Route: 065
     Dates: start: 2008
  8. NORVASC [Concomitant]
     Active Substance: AMLODIPINE BESYLATE
  9. PREDNISONE. [Suspect]
     Active Substance: PREDNISONE
     Route: 065
     Dates: start: 201602

REACTIONS (8)
  - Dacryocystitis [Unknown]
  - Blood creatinine increased [Unknown]
  - Haematuria [Not Recovered/Not Resolved]
  - Granulomatosis with polyangiitis [Unknown]
  - Weight increased [Unknown]
  - Blood pressure abnormal [Unknown]
  - Proteinuria [Unknown]
  - Epistaxis [Unknown]

NARRATIVE: CASE EVENT DATE: 2016
